FAERS Safety Report 8149829-7 (Version None)
Quarter: 2012Q1

REPORT INFORMATION
  Report Type: 
  Country: None (occurrence: None)
  Receive Date: 20120218
  Receipt Date: 20111202
  Transmission Date: 20120608
  Serious: No
  Sender: FDA-Public Use
  Company Number: US-ALLERGAN-1115953US

PATIENT
  Age: 73 Year
  Sex: Male

DRUGS (2)
  1. BOTULINUM TOXIN TYPE A [Suspect]
     Dosage: 300 UNITS, SINGLE, EVERY 3 MONTHS FOR THE PAST 8 YEARS
     Route: 030
     Dates: start: 20030101
  2. BOTULINUM TOXIN TYPE A [Suspect]
     Indication: TORTICOLLIS
     Dosage: 300 UNITS, SINGLE
     Route: 030
     Dates: start: 20111005, end: 20111005

REACTIONS (2)
  - MUSCLE RUPTURE [None]
  - MUSCLE ATROPHY [None]
